FAERS Safety Report 9325272 (Version 36)
Quarter: 2021Q3

REPORT INFORMATION
  Report Type: Other
  Country: CA (occurrence: CA)
  Receive Date: 20130604
  Receipt Date: 20210818
  Transmission Date: 20211014
  Serious: Yes (Hospitalization, Other)
  Sender: FDA-Public Use
  Company Number: CA-ROCHE-1229027

PATIENT
  Age: 61 Year
  Sex: Female
  Weight: 81 kg

DRUGS (45)
  1. TAZOCIN [Suspect]
     Active Substance: PIPERACILLIN SODIUM\TAZOBACTAM SODIUM
     Indication: INFECTION
     Route: 042
  2. CIPRALEX [Concomitant]
     Active Substance: ESCITALOPRAM OXALATE
  3. PREDNISONE. [Concomitant]
     Active Substance: PREDNISONE
  4. CODEINE [Concomitant]
     Active Substance: CODEINE
  5. SALBUTAMOL [Concomitant]
     Active Substance: ALBUTEROL
  6. NITROGLYCERIN. [Concomitant]
     Active Substance: NITROGLYCERIN
  7. RITUXAN [Suspect]
     Active Substance: RITUXIMAB
     Indication: RHEUMATOID ARTHRITIS
     Dosage: DATE OF LAST INFUSION: 26/FEB/2016
     Route: 042
     Dates: start: 20130514
  8. RITUXAN [Suspect]
     Active Substance: RITUXIMAB
     Route: 042
     Dates: start: 20160201
  9. SPIRIVA [Concomitant]
     Active Substance: TIOTROPIUM BROMIDE MONOHYDRATE
  10. ADVAIR HFA [Concomitant]
     Active Substance: FLUTICASONE PROPIONATE\SALMETEROL XINAFOATE
  11. OXYGEN. [Concomitant]
     Active Substance: OXYGEN
  12. FUROSEMIDE. [Concomitant]
     Active Substance: FUROSEMIDE
  13. MAGNESIUM [Concomitant]
     Active Substance: MAGNESIUM
  14. VITAMIN D3 [Concomitant]
     Active Substance: CHOLECALCIFEROL
  15. DIPHENHYDRAMINE HCL [Concomitant]
     Active Substance: DIPHENHYDRAMINE HYDROCHLORIDE
     Indication: PREMEDICATION
     Route: 048
     Dates: start: 20130514
  16. ARAVA [Concomitant]
     Active Substance: LEFLUNOMIDE
  17. CLONAZEPAM. [Concomitant]
     Active Substance: CLONAZEPAM
  18. AMLODIPINE [Concomitant]
     Active Substance: AMLODIPINE BESYLATE
  19. VENTOLIN [Concomitant]
     Active Substance: ALBUTEROL SULFATE
  20. ZOPLICONE [Concomitant]
     Active Substance: ZOPICLONE
  21. MONTELUKAST [Concomitant]
     Active Substance: MONTELUKAST SODIUM
     Indication: SEASONAL ALLERGY
  22. SALBUTAMOL [Concomitant]
     Active Substance: ALBUTEROL
  23. COVID?19 VACCINE NOS. [Suspect]
     Active Substance: COVID-19 VACCINE NOS
     Indication: COVID-19 IMMUNISATION
     Route: 065
  24. COUMADIN [Concomitant]
     Active Substance: WARFARIN SODIUM
  25. IMOVANE [Concomitant]
     Active Substance: ZOPICLONE
  26. ESCITALOPRAM [Concomitant]
     Active Substance: ESCITALOPRAM OXALATE
  27. LORAZEPAM. [Concomitant]
     Active Substance: LORAZEPAM
  28. TYLENOL [Concomitant]
     Active Substance: ACETAMINOPHEN
  29. NEXIUM [Concomitant]
     Active Substance: ESOMEPRAZOLE MAGNESIUM
  30. ZOPICLONE [Concomitant]
     Active Substance: ZOPICLONE
  31. NITRO [Concomitant]
     Active Substance: NITROGLYCERIN
  32. TOLOXIN [Concomitant]
     Active Substance: DIGOXIN
  33. RAMIPRIL. [Concomitant]
     Active Substance: RAMIPRIL
  34. WARFARIN [Concomitant]
     Active Substance: WARFARIN
     Dosage: 2MG/3MG
  35. LASIX [Concomitant]
     Active Substance: FUROSEMIDE
  36. NITRO PATCH [Concomitant]
     Active Substance: NITROGLYCERIN
  37. METHYLPREDNISOLONE. [Concomitant]
     Active Substance: METHYLPREDNISOLONE
     Indication: PREMEDICATION
     Route: 042
     Dates: start: 20130514
  38. LEFLUNOMIDE. [Concomitant]
     Active Substance: LEFLUNOMIDE
  39. XARELTO [Concomitant]
     Active Substance: RIVAROXABAN
  40. ANORO ELLIPTA [Concomitant]
     Active Substance: UMECLIDINIUM BROMIDE\VILANTEROL TRIFENATATE
  41. OLANZAPINE. [Concomitant]
     Active Substance: OLANZAPINE
  42. ACETAMINOPHEN. [Concomitant]
     Active Substance: ACETAMINOPHEN
     Indication: PREMEDICATION
     Route: 048
     Dates: start: 20130514
  43. DIGOXIN. [Concomitant]
     Active Substance: DIGOXIN
  44. ZYPREXA [Concomitant]
     Active Substance: OLANZAPINE
  45. SOLIFENACIN [Concomitant]
     Active Substance: SOLIFENACIN

REACTIONS (52)
  - Hypotension [Not Recovered/Not Resolved]
  - Renal cancer [Unknown]
  - Weight increased [Unknown]
  - Dyspnoea [Unknown]
  - Arthralgia [Not Recovered/Not Resolved]
  - Benign breast neoplasm [Not Recovered/Not Resolved]
  - Benign neoplasm of thyroid gland [Not Recovered/Not Resolved]
  - Blood pressure systolic increased [Unknown]
  - Blood pressure increased [Unknown]
  - Musculoskeletal disorder [Unknown]
  - Abdominal pain [Unknown]
  - Hepatitis [Not Recovered/Not Resolved]
  - Limb deformity [Unknown]
  - C-reactive protein increased [Unknown]
  - Diarrhoea [Unknown]
  - Malaise [Unknown]
  - Weight decreased [Unknown]
  - Abdominal discomfort [Unknown]
  - Joint swelling [Recovering/Resolving]
  - Neck pain [Not Recovered/Not Resolved]
  - Influenza like illness [Not Recovered/Not Resolved]
  - Heart rate increased [Unknown]
  - Influenza [Unknown]
  - Arthropathy [Unknown]
  - Fatigue [Unknown]
  - Vomiting [Unknown]
  - Peripheral swelling [Not Recovered/Not Resolved]
  - Balance disorder [Recovered/Resolved]
  - Musculoskeletal discomfort [Unknown]
  - Nausea [Recovered/Resolved]
  - Heart rate increased [Unknown]
  - Pain [Unknown]
  - Oxygen saturation abnormal [Recovered/Resolved]
  - Rash erythematous [Unknown]
  - Rheumatoid arthritis [Not Recovered/Not Resolved]
  - Fall [Unknown]
  - Cellulitis [Unknown]
  - Arthralgia [Unknown]
  - Grip strength decreased [Not Recovered/Not Resolved]
  - Musculoskeletal stiffness [Unknown]
  - Respiratory rate increased [Unknown]
  - Blood pressure increased [Recovered/Resolved]
  - Infusion related reaction [Recovered/Resolved]
  - Movement disorder [Unknown]
  - Dyspepsia [Unknown]
  - Blood pressure fluctuation [Unknown]
  - International normalised ratio increased [Recovered/Resolved]
  - Localised infection [Recovered/Resolved]
  - Asthenia [Not Recovered/Not Resolved]
  - Blood pressure diastolic abnormal [Unknown]
  - Retching [Recovered/Resolved]
  - Musculoskeletal stiffness [Not Recovered/Not Resolved]

NARRATIVE: CASE EVENT DATE: 20130515
